FAERS Safety Report 4330663-0 (Version None)
Quarter: 2004Q2

REPORT INFORMATION
  Report Type: 
  Country: None (occurrence: None)
  Receive Date: 20040402
  Receipt Date: 20040322
  Transmission Date: 20050107
  Serious: Yes (Hospitalization)
  Sender: FDA-Public Use
  Company Number: FR-GLAXOSMITHKLINE-B0327695A

PATIENT
  Age: 63 Year
  Sex: Male

DRUGS (1)
  1. LANVIS [Suspect]
     Indication: ACUTE LYMPHOCYTIC LEUKAEMIA
     Dosage: 160MG PER DAY
     Route: 048
     Dates: start: 20031001, end: 20031015

REACTIONS (5)
  - ANAEMIA [None]
  - DIARRHOEA HAEMORRHAGIC [None]
  - NEUTROPENIA [None]
  - PANCYTOPENIA [None]
  - THROMBOCYTOPENIA [None]
